FAERS Safety Report 8809584 (Version 1)
Quarter: 2012Q4

REPORT INFORMATION
  Report Type: Report from Study
  Country: JP (occurrence: JP)
  Receive Date: 20120926
  Receipt Date: 20120926
  Transmission Date: 20130627
  Serious: Yes (Other)
  Sender: FDA-Public Use
  Company Number: JP-VERTEX PHARMACEUTICAL INC.-AE-2012-007596

PATIENT
  Age: 40 Year
  Sex: Female

DRUGS (11)
  1. VX-950 [Suspect]
     Indication: HEPATITIS C
     Dosage: 2250 mg, qd
     Route: 048
     Dates: start: 20120327, end: 20120425
  2. VX-950 [Suspect]
     Dosage: 1500 mg, qd
     Route: 048
     Dates: start: 20120426, end: 20120620
  3. RIBAVIRIN [Suspect]
     Indication: HEPATITIS C
     Dosage: 600 mg, qd
     Route: 048
     Dates: start: 20120327, end: 20120418
  4. RIBAVIRIN [Suspect]
     Dosage: 400 mg, qd
     Route: 048
     Dates: start: 20120419, end: 20120425
  5. RIBAVIRIN [Suspect]
     Dosage: 200 mg, qd
     Route: 048
     Dates: start: 20120426, end: 20120905
  6. RIBAVIRIN [Suspect]
     Dosage: 400 mg, qd
     Route: 048
     Dates: start: 20120906, end: 20120912
  7. PEGINTRON                          /01543001/ [Suspect]
     Indication: HEPATITIS C
     Dosage: 1.5 UNK, UNK
     Route: 058
     Dates: start: 20120327, end: 20120327
  8. PEGINTRON                          /01543001/ [Suspect]
     Dosage: 0.75 UNK, UNK
     Route: 058
     Dates: start: 20120403, end: 20120403
  9. PEGINTRON                          /01543001/ [Suspect]
     Dosage: 1.5 UNK, UNK
     Route: 058
     Dates: start: 20120410, end: 20120906
  10. JUZENTAIHOTO [Concomitant]
     Dosage: 7.5 g, qd
     Route: 048
  11. LAXOBERON [Concomitant]
     Dosage: UNK
     Route: 048

REACTIONS (1)
  - Neutrophil count decreased [Recovered/Resolved]
